FAERS Safety Report 14836891 (Version 3)
Quarter: 2018Q2

REPORT INFORMATION
  Report Type: Spontaneous
  Country: FR (occurrence: FR)
  Receive Date: 20180502
  Receipt Date: 20180516
  Transmission Date: 20180711
  Serious: Yes (Hospitalization, Other)
  Sender: FDA-Public Use
  Company Number: FR-PFIZER INC-2018177670

PATIENT
  Age: 74 Year
  Sex: Male

DRUGS (12)
  1. TRIATEC (RAMIPRIL) [Suspect]
     Active Substance: RAMIPRIL
     Indication: HYPERTENSION
     Dosage: 5 MG, UNK
     Route: 048
  2. PRIVIGEN [Suspect]
     Active Substance: HUMAN IMMUNOGLOBULIN G
     Dosage: 100 ML, UNK
     Route: 041
     Dates: start: 20180219
  3. PRIVIGEN [Suspect]
     Active Substance: HUMAN IMMUNOGLOBULIN G
     Indication: PERIPHERAL SENSORY NEUROPATHY
     Dosage: UNK
     Route: 042
     Dates: start: 20180212, end: 20180214
  4. BISOPROLOL FUMARATE. [Suspect]
     Active Substance: BISOPROLOL FUMARATE
     Indication: HYPERTENSION
  5. PRIVIGEN [Suspect]
     Active Substance: HUMAN IMMUNOGLOBULIN G
     Dosage: 100 MG/ML, 5 DAYS EVERY 12 WEEKS
     Route: 042
     Dates: start: 20180219
  6. PREVISCAN (FLUINDIONE) [Suspect]
     Active Substance: FLUINDIONE
     Indication: ATRIAL FIBRILLATION
     Dosage: 20 MG, UNK
     Route: 048
  7. BISOPROLOL FUMARATE. [Suspect]
     Active Substance: BISOPROLOL FUMARATE
     Indication: ATRIAL FIBRILLATION
     Dosage: 5 MG, UNK
     Route: 048
  8. SALINE [Concomitant]
     Active Substance: SODIUM CHLORIDE
     Dosage: UNK
  9. TAMSULOSIN [Suspect]
     Active Substance: TAMSULOSIN
     Indication: BENIGN PROSTATIC HYPERPLASIA
     Dosage: 0.4 MG, UNK
     Route: 048
  10. PRIVIGEN [Suspect]
     Active Substance: HUMAN IMMUNOGLOBULIN G
     Dosage: 12 DF, UNK
     Route: 041
     Dates: start: 20180219, end: 20180219
  11. FLECAINE [Suspect]
     Active Substance: FLECAINIDE
     Indication: ATRIAL FIBRILLATION
     Dosage: 50 MG, UNK
     Route: 048
  12. AVODART [Suspect]
     Active Substance: DUTASTERIDE
     Indication: BENIGN PROSTATIC HYPERPLASIA
     Dosage: 20 MG, UNK
     Route: 048

REACTIONS (9)
  - Leukopenia [Unknown]
  - Chills [None]
  - Suspected transmission of an infectious agent via product [Unknown]
  - Pyrexia [Unknown]
  - Procalcitonin increased [Unknown]
  - Chills [Unknown]
  - Blood pressure systolic decreased [Unknown]
  - Neutropenia [Unknown]
  - Staphylococcus test positive [Unknown]

NARRATIVE: CASE EVENT DATE: 20180219
